FAERS Safety Report 6756926-7 (Version None)
Quarter: 2010Q2

REPORT INFORMATION
  Report Type: 
  Country: None (occurrence: None)
  Receive Date: 20100604
  Receipt Date: 20100525
  Transmission Date: 20101027
  Serious: Yes (Life-Threatening, Other)
  Sender: FDA-Public Use
  Company Number: CZ-PFIZER INC-2010067204

PATIENT
  Age: 47 Year
  Sex: Male

DRUGS (6)
  1. DOXORUBICIN HCL [Suspect]
     Indication: TONSILLAR NEOPLASM
     Dosage: UNK
     Dates: start: 20080801, end: 20081101
  2. CYCLOPHOSPHAMIDE [Suspect]
     Indication: TONSILLAR NEOPLASM
     Dosage: UNK
     Dates: start: 20080801, end: 20081101
  3. VINCRISTINE [Suspect]
     Indication: TONSILLAR NEOPLASM
     Dosage: UNK
     Dates: start: 20080801, end: 20081101
  4. PREDNISONE [Suspect]
     Indication: TONSILLAR NEOPLASM
     Dosage: UNK
     Dates: start: 20080801, end: 20081101
  5. RITUXIMAB [Suspect]
     Indication: TONSILLAR NEOPLASM
     Dosage: UNK
     Dates: start: 20080801, end: 20081101
  6. RITUXIMAB [Suspect]
     Dosage: UNK
     Dates: start: 20090101

REACTIONS (2)
  - ACUTE HEPATIC FAILURE [None]
  - HEPATITIS B [None]
